FAERS Safety Report 10926679 (Version 1)
Quarter: 2015Q1

REPORT INFORMATION
  Report Type: Spontaneous
  Country: US (occurrence: US)
  Receive Date: 20150318
  Receipt Date: 20150318
  Transmission Date: 20150721
  Serious: No
  Sender: FDA-Public Use
  Company Number: US-PFIZER INC-2015091999

PATIENT
  Sex: Male
  Weight: 177 kg

DRUGS (1)
  1. GEODON [Suspect]
     Active Substance: ZIPRASIDONE HYDROCHLORIDE\ZIPRASIDONE MESYLATE
     Dosage: ONE 80 MG CAPSULE IN THE MORNING AND TWO 80 MG CAPSULES AT NIGHT, 2X/DAY

REACTIONS (1)
  - Weight increased [Unknown]
